FAERS Safety Report 10381880 (Version 1)
Quarter: 2014Q1

REPORT INFORMATION
  Report Type: Spontaneous
  Country: US (occurrence: None)
  Receive Date: 20140306
  Receipt Date: 20140306
  Transmission Date: 20141002
  Serious: Yes (Other)
  Sender: FDA-Public Use
  Company Number: 163-21880-13090326

PATIENT
  Age: 87 Year
  Sex: Male

DRUGS (1)
  1. REVLIMID [Suspect]
     Indication: PLASMA CELL MYELOMA
     Route: 048
     Dates: start: 200906

REACTIONS (9)
  - Loss of consciousness [None]
  - Fatigue [None]
  - Constipation [None]
  - Diarrhoea [None]
  - Abdominal pain [None]
  - Muscle spasms [None]
  - Limb discomfort [None]
  - Bone pain [None]
  - Dizziness [None]
